FAERS Safety Report 6573224-5 (Version None)
Quarter: 2010Q1

REPORT INFORMATION
  Report Type: 
  Country: None (occurrence: None)
  Receive Date: 20100208
  Receipt Date: 20100125
  Transmission Date: 20100710
  Serious: Yes (Hospitalization)
  Sender: FDA-Public Use
  Company Number: US-JNJFOC-20100109952

PATIENT
  Sex: Female
  Weight: 75.3 kg

DRUGS (2)
  1. STELARA [Suspect]
     Indication: PSORIASIS
     Route: 065
  2. STELARA [Suspect]
     Route: 065

REACTIONS (2)
  - MALAISE [None]
  - UPPER RESPIRATORY TRACT INFECTION BACTERIAL [None]
